FAERS Safety Report 13119839 (Version 2)
Quarter: 2018Q1

REPORT INFORMATION
  Report Type: Spontaneous
  Country: US (occurrence: US)
  Receive Date: 20170117
  Receipt Date: 20180315
  Transmission Date: 20180508
  Serious: Yes (Other)
  Sender: FDA-Public Use
  Company Number: US-CONCORDIA PHARMACEUTICALS INC.-E2B_00007989

PATIENT
  Age: 78 Year
  Sex: Female
  Weight: 69.01 kg

DRUGS (16)
  1. LISINOPRIL. [Suspect]
     Active Substance: LISINOPRIL
     Route: 048
  2. DILTIAZEM CD [Concomitant]
     Active Substance: DILTIAZEM
  3. RECLAST [Concomitant]
     Active Substance: ZOLEDRONIC ACID
  4. PULMICORT FLEXHALER [Suspect]
     Active Substance: BUDESONIDE
     Route: 055
     Dates: start: 20160129
  5. INCRUSE ELLIPTA [Concomitant]
     Active Substance: UMECLIDINIUM BROMIDE
     Indication: DYSPNOEA
     Dosage: DAILY
     Dates: start: 2015
  6. METOPROLOL HYDROCHLOROTHIAZIDE [Suspect]
     Active Substance: HYDROCHLOROTHIAZIDE\METOPROLOL TARTRATE
     Dosage: ONE TABLET DAILY
     Route: 048
     Dates: start: 20160628
  7. PULMICORT FLEXHALER [Suspect]
     Active Substance: BUDESONIDE
     Indication: CHRONIC OBSTRUCTIVE PULMONARY DISEASE
     Dosage: 90MCG 1 PUFF TWICE DAILY
     Route: 055
     Dates: start: 2015
  8. PULMICORT FLEXHALER [Suspect]
     Active Substance: BUDESONIDE
     Dosage: 90MCG 1 PUFF TWICE DAILY
     Route: 055
     Dates: start: 2013
  9. VENTOLIN HFA [Concomitant]
     Active Substance: ALBUTEROL SULFATE
     Indication: DYSPNOEA
     Dates: start: 20160129
  10. PULMICORT FLEXHALER [Suspect]
     Active Substance: BUDESONIDE
     Indication: DYSPNOEA
     Dosage: 90MCG 1 PUFF TWICE DAILY
     Route: 055
     Dates: start: 2015
  11. PULMICORT FLEXHALER [Suspect]
     Active Substance: BUDESONIDE
     Dosage: 90MCG 1 PUFF TWICE DAILY
     Route: 055
     Dates: start: 2013
  12. HYDRALAZINE [Concomitant]
     Active Substance: HYDRALAZINE HYDROCHLORIDE
     Route: 048
  13. ATORVASTATIN CALCIUM. [Concomitant]
     Active Substance: ATORVASTATIN CALCIUM
  14. UNISOM SLEEPTABS [Concomitant]
     Active Substance: DOXYLAMINE SUCCINATE
     Route: 048
  15. PULMICORT FLEXHALER [Suspect]
     Active Substance: BUDESONIDE
     Route: 055
     Dates: start: 20160129
  16. VITAMIN D3 [Concomitant]
     Active Substance: CHOLECALCIFEROL
     Route: 048

REACTIONS (5)
  - Intentional product misuse [Unknown]
  - Chest discomfort [Unknown]
  - Bronchospasm [Unknown]
  - Head discomfort [Unknown]
  - Product use issue [Unknown]

NARRATIVE: CASE EVENT DATE: 201801
